FAERS Safety Report 20547801 (Version 1)
Quarter: 2022Q1

REPORT INFORMATION
  Report Type: Report from Study
  Country: AU (occurrence: AU)
  Receive Date: 20220303
  Receipt Date: 20220303
  Transmission Date: 20220423
  Serious: Yes (Other)
  Sender: FDA-Public Use
  Company Number: AU-NOVARTISPH-PHHO2017AU016130

PATIENT
  Age: 56 Year
  Sex: Female

DRUGS (17)
  1. SIPONIMOD [Suspect]
     Active Substance: SIPONIMOD
     Indication: Secondary progressive multiple sclerosis
     Dosage: 2 MG, UNK
     Route: 048
     Dates: start: 20140109, end: 20160329
  2. SIPONIMOD [Suspect]
     Active Substance: SIPONIMOD
     Indication: Secondary progressive multiple sclerosis
     Dosage: 2 MG, QD
     Route: 048
     Dates: start: 20160331
  3. BIOTIN [Concomitant]
     Active Substance: BIOTIN
     Indication: Vitamin supplementation
     Dosage: 300 MG, QD
     Route: 048
     Dates: start: 20160908, end: 20200407
  4. VITAMIN D3 [Concomitant]
     Active Substance: CHOLECALCIFEROL
     Indication: Vitamin supplementation
     Dosage: 5000 IU, QOD
     Route: 048
     Dates: start: 20090101
  5. MAGNESIUM [Concomitant]
     Active Substance: MAGNESIUM
     Indication: Mineral supplementation
     Dosage: 620 MG, QD
     Route: 048
     Dates: start: 20090101
  6. BACLOFEN [Concomitant]
     Active Substance: BACLOFEN
     Indication: Muscle spasticity
     Dosage: 50 MG, QD
     Route: 048
     Dates: start: 20060310
  7. ESTROGENS, CONJUGATED\MEDROXYPROGESTERONE ACETATE [Concomitant]
     Active Substance: ESTROGENS, CONJUGATED\MEDROXYPROGESTERONE ACETATE
     Indication: Menopause
     Dosage: 5 MG, QD
     Route: 048
     Dates: start: 201212
  8. MEDROXYPROGESTERONE ACETATE [Concomitant]
     Active Substance: MEDROXYPROGESTERONE ACETATE
     Indication: Hormone replacement therapy
     Dosage: 5 MG, QD
     Route: 048
     Dates: start: 201901
  9. ESTRADIOL VALERATE [Concomitant]
     Active Substance: ESTRADIOL VALERATE
     Indication: Hormone replacement therapy
     Dosage: 2 MG, QD
     Route: 048
     Dates: start: 201901
  10. ACETAMINOPHEN [Concomitant]
     Active Substance: ACETAMINOPHEN
     Indication: Headache
     Dosage: 1 G, PRN
     Route: 048
  11. CELECOXIB [Concomitant]
     Active Substance: CELECOXIB
     Indication: Arthralgia
     Dosage: 100 MG, QOD
     Route: 048
     Dates: start: 2010
  12. DALFAMPRIDINE [Concomitant]
     Active Substance: DALFAMPRIDINE
     Indication: Prophylaxis
     Dosage: 10 MG, BID
     Route: 048
     Dates: start: 20130501
  13. NIFEDIPINE [Concomitant]
     Active Substance: NIFEDIPINE
     Indication: Chillblains
     Dosage: 20 MG, PRN
     Route: 048
     Dates: start: 20150401
  14. ESOMEPRAZOLE [Concomitant]
     Active Substance: ESOMEPRAZOLE
     Indication: Gastritis
     Dosage: 20 MG, QD
     Route: 048
     Dates: start: 201607, end: 201712
  15. CELEBREX [Concomitant]
     Active Substance: CELECOXIB
     Indication: Arthralgia
     Dosage: 200 MG, QD
     Route: 048
     Dates: start: 201607, end: 201612
  16. NAPROXEN [Concomitant]
     Active Substance: NAPROXEN
     Indication: Arthralgia
     Dosage: 1100 MG, QD
     Route: 048
     Dates: start: 20170322, end: 201805
  17. TRIMETHOPRIM [Concomitant]
     Active Substance: TRIMETHOPRIM
     Indication: Urinary tract infection
     Dosage: 100 MG, QD
     Route: 048
     Dates: start: 20170420, end: 20170426

REACTIONS (1)
  - Bowen^s disease [Recovered/Resolved]

NARRATIVE: CASE EVENT DATE: 20170920
